FAERS Safety Report 20038803 (Version 1)
Quarter: 2021Q4

REPORT INFORMATION
  Report Type: Spontaneous
  Country: US (occurrence: US)
  Receive Date: 20211105
  Receipt Date: 20211105
  Transmission Date: 20220303
  Serious: Yes (Other)
  Sender: FDA-Public Use
  Company Number: US-PFIZER INC-202101259637

PATIENT
  Age: 41 Year
  Sex: Male

DRUGS (1)
  1. RAPAMUNE [Suspect]
     Active Substance: SIROLIMUS
     Dosage: 3 MG, 1X/DAY (TAKE 3 (1 MG TABLETS) ONCE DAILY)
     Route: 048

REACTIONS (3)
  - Anosmia [Recovered/Resolved]
  - Ageusia [Recovered/Resolved]
  - Product prescribing error [Unknown]
